FAERS Safety Report 9258807 (Version 1)
Quarter: 2013Q2

REPORT INFORMATION
  Report Type: Spontaneous
  Country: PT (occurrence: PT)
  Receive Date: 20130426
  Receipt Date: 20130426
  Transmission Date: 20140414
  Serious: Yes (Other)
  Sender: FDA-Public Use
  Company Number: PT-TEVA-399664ISR

PATIENT
  Age: 72 Year
  Sex: Female
  Weight: 63 kg

DRUGS (10)
  1. OXALIPLATINA TEVA [Suspect]
     Indication: RECTAL CANCER
     Dosage: 142.8 MG IN 250 ML OF 5% GLUCOSE INFUSION IV OF 2:0 AND IN 2 WEEKS
     Route: 042
     Dates: start: 20130325
  2. DEXAMETASONA [Concomitant]
     Route: 042
     Dates: start: 20130325
  3. ONDANSETROM [Concomitant]
     Route: 048
     Dates: start: 20130325
  4. ONDANSETROM [Concomitant]
     Route: 042
     Dates: start: 20130325
  5. GLUCONATO DE CALCIO [Concomitant]
     Dates: start: 20130325
  6. SULFATO DE MAGN?SIO [Concomitant]
     Dates: start: 20130325
  7. ?CIDO FOL?NICO [Concomitant]
     Dates: start: 20130325
  8. FLUOROURACILO [Concomitant]
     Dates: start: 20130325
  9. CONCOR [Concomitant]
     Route: 048
  10. SEDOXIL [Concomitant]
     Route: 048

REACTIONS (3)
  - Erythema [Recovered/Resolved]
  - Hypertensive crisis [Recovered/Resolved]
  - Dyspnoea [Recovered/Resolved]
